FAERS Safety Report 11940975 (Version 1)
Quarter: 2016Q1

REPORT INFORMATION
  Report Type: Report from Study
  Country: PR (occurrence: PR)
  Receive Date: 20160122
  Receipt Date: 20160122
  Transmission Date: 20160526
  Serious: No
  Sender: FDA-Public Use
  Company Number: PR-ABBVIE-15K-131-1356831-00

PATIENT
  Age: 64 Year
  Sex: Male

DRUGS (2)
  1. PROVENTIL [Concomitant]
     Active Substance: ALBUTEROL
     Indication: PRODUCT USED FOR UNKNOWN INDICATION
  2. HUMIRA [Suspect]
     Active Substance: ADALIMUMAB
     Indication: CROHN^S DISEASE
     Route: 058
     Dates: start: 20140815

REACTIONS (1)
  - Nasopharyngitis [Recovered/Resolved]

NARRATIVE: CASE EVENT DATE: 20141114
